FAERS Safety Report 17903089 (Version 1)
Quarter: 2020Q2

REPORT INFORMATION
  Report Type: Spontaneous
  Country: PH (occurrence: NL)
  Receive Date: 20200617
  Receipt Date: 20200617
  Transmission Date: 20200714
  Serious: Yes (Hospitalization)
  Sender: FDA-Public Use
  Company Number: PH-TWI PHARMACEUTICAL, INC-2020SCTW000011

PATIENT

DRUGS (1)
  1. SEVELAMER CARBONATE TABLETS [Suspect]
     Active Substance: SEVELAMER CARBONATE
     Indication: PRODUCT USED FOR UNKNOWN INDICATION
     Dosage: UNK
     Route: 065

REACTIONS (2)
  - Rectal ulcer [Unknown]
  - Lower gastrointestinal haemorrhage [Recovered/Resolved]
